FAERS Safety Report 17901236 (Version 1)
Quarter: 2020Q2

REPORT INFORMATION
  Report Type: Spontaneous
  Country: FR (occurrence: FR)
  Receive Date: 20200616
  Receipt Date: 20200616
  Transmission Date: 20200714
  Serious: Yes (Hospitalization)
  Sender: FDA-Public Use
  Company Number: FR-VERITY PHARMACEUTICALS, INC.-2020VTY00025

PATIENT
  Age: 81 Year
  Sex: Male

DRUGS (7)
  1. KARDEGIC [Suspect]
     Active Substance: ASPIRIN DL-LYSINE
     Indication: PLATELET AGGREGATION
     Dosage: 1 DOSAGE UNITS, 1X/DAY (1 DOSAGE FORMS, 1 IN 1 D)
     Route: 048
     Dates: start: 20200221
  2. ATORVASTATINE [Suspect]
     Active Substance: ATORVASTATIN
     Indication: DYSLIPIDAEMIA
     Dosage: 80 MG, 1X/DAY (1 IN 1 D)
     Route: 048
     Dates: start: 20200221
  3. BISOPROLOL FUMARATE. [Suspect]
     Active Substance: BISOPROLOL FUMARATE
     Indication: ACUTE CORONARY SYNDROME
     Dosage: 2.5 MG, 1X/DAY (1 IN 1 D)
     Route: 048
     Dates: start: 20200221
  4. TRELSTAR [Suspect]
     Active Substance: TRIPTORELIN PAMOATE
     Indication: BENIGN PROSTATIC HYPERPLASIA
     Dosage: 1 DOSAGE UNITS, 2X/YEAR (1 DOSAGE FORMS, 1 IN 6 M)
     Route: 030
  5. PANTOPRAZOLE [Suspect]
     Active Substance: PANTOPRAZOLE
     Indication: PROPHYLAXIS AGAINST GASTROINTESTINAL ULCER
     Dosage: 20 MG, 1X/DAY (1 IN 1 D)
     Route: 048
     Dates: start: 20200221
  6. RAMIPRIL. [Suspect]
     Active Substance: RAMIPRIL
     Indication: HYPERTENSION
     Dosage: 2.5 MG, 1X/DAY (1 IN 1 D)
     Route: 048
     Dates: start: 20200221
  7. BRILIQUE [Suspect]
     Active Substance: TICAGRELOR
     Indication: PLATELET AGGREGATION
     Dosage: 2 DOSAGE UNITS, 1X/DAY (2 DOSAGE FORMS, 1 IN 1 D)
     Route: 048
     Dates: start: 20200221

REACTIONS (3)
  - Anaemia [Not Recovered/Not Resolved]
  - Rectal haemorrhage [Not Recovered/Not Resolved]
  - Off label use [Not Recovered/Not Resolved]

NARRATIVE: CASE EVENT DATE: 20200404
